FAERS Safety Report 9779570 (Version 1)
Quarter: 2013Q4

REPORT INFORMATION
  Report Type: Spontaneous
  Country: IT (occurrence: IT)
  Receive Date: 20131223
  Receipt Date: 20131223
  Transmission Date: 20140711
  Serious: Yes (Hospitalization)
  Sender: FDA-Public Use
  Company Number: IT-ASTRAZENECA-2013SE92883

PATIENT
  Age: 77 Year
  Sex: Female

DRUGS (2)
  1. FASLODEX [Suspect]
     Route: 030
     Dates: start: 2008
  2. DENTAL THERAPY [Concomitant]

REACTIONS (3)
  - Swelling face [Recovered/Resolved]
  - Dyspnoea [Recovered/Resolved]
  - Local swelling [Unknown]
